FAERS Safety Report 23799247 (Version 2)
Quarter: 2024Q2

REPORT INFORMATION
  Report Type: Report from Study
  Country: US (occurrence: US)
  Receive Date: 20240430
  Receipt Date: 20240506
  Transmission Date: 20240716
  Serious: Yes (Other)
  Sender: FDA-Public Use
  Company Number: US-009507513-2404USA012333

PATIENT
  Sex: Female

DRUGS (5)
  1. PEMBROLIZUMAB [Suspect]
     Active Substance: PEMBROLIZUMAB
     Indication: Malignant melanoma
     Dosage: UNK
     Dates: start: 20240207, end: 20240207
  2. PEMBROLIZUMAB [Suspect]
     Active Substance: PEMBROLIZUMAB
     Dosage: UNK
     Dates: start: 20240228, end: 20240228
  3. PEMBROLIZUMAB [Suspect]
     Active Substance: PEMBROLIZUMAB
     Dosage: UNK
     Dates: start: 20240320, end: 20240320
  4. SIMVASTATIN [Concomitant]
     Active Substance: SIMVASTATIN
  5. ZETIA [Concomitant]
     Active Substance: EZETIMIBE

REACTIONS (4)
  - Neuropathy peripheral [Not Recovered/Not Resolved]
  - Insomnia [Unknown]
  - Discomfort [Unknown]
  - Swelling face [Recovered/Resolved]

NARRATIVE: CASE EVENT DATE: 20240101
